FAERS Safety Report 7939336-6 (Version None)
Quarter: 2011Q4

REPORT INFORMATION
  Report Type: 
  Country: None (occurrence: None)
  Receive Date: 20111125
  Receipt Date: 20111114
  Transmission Date: 20120403
  Serious: Yes (Hospitalization, Other)
  Sender: FDA-Public Use
  Company Number: US-BAYER-2011-029221

PATIENT
  Age: 31 Year
  Sex: Female

DRUGS (4)
  1. KEPPRA [Concomitant]
     Indication: CONVULSION
     Dosage: UNK UNK, BID
     Route: 048
     Dates: start: 20070501, end: 20111101
  2. YAZ [Suspect]
     Indication: PREMENSTRUAL SYNDROME
     Dosage: UNK
     Dates: start: 20070301, end: 20090301
  3. HYDROCODONE BITARTRATE [Concomitant]
     Indication: BACK INJURY
     Dosage: UNK UNK, TID
     Route: 048
     Dates: start: 20080101
  4. TRAMADOL HCL [Concomitant]
     Indication: FIBROMYALGIA
     Dosage: UNK UNK, QID
     Route: 048
     Dates: start: 19980101

REACTIONS (6)
  - EMOTIONAL DISTRESS [None]
  - GALLBLADDER INJURY [None]
  - CHOLECYSTITIS [None]
  - INJURY [None]
  - PAIN [None]
  - GALLBLADDER ENLARGEMENT [None]
